FAERS Safety Report 14477810 (Version 1)
Quarter: 2018Q1

REPORT INFORMATION
  Report Type: Report from Study
  Country: US (occurrence: US)
  Receive Date: 20180201
  Receipt Date: 20180201
  Transmission Date: 20180509
  Serious: No
  Sender: FDA-Public Use
  Company Number: US-EXELIXIS-CABO-17009177

PATIENT
  Sex: Female

DRUGS (10)
  1. COMETRIQ [Suspect]
     Active Substance: CABOZANTINIB S-MALATE
     Indication: RENAL CANCER
     Dosage: 60 MG, QD
     Route: 048
     Dates: start: 20150924, end: 20160107
  2. COMETRIQ [Suspect]
     Active Substance: CABOZANTINIB S-MALATE
     Dosage: 40 MG, QD, 3 WEEKS ON, 1 WEEK OFF
     Route: 048
  3. MORPHINE [Concomitant]
     Active Substance: MORPHINE
  4. VICODIN [Concomitant]
     Active Substance: ACETAMINOPHEN\HYDROCODONE BITARTRATE
  5. COMETRIQ [Suspect]
     Active Substance: CABOZANTINIB S-MALATE
     Dosage: 40 MG, QD
     Route: 048
     Dates: start: 201610
  6. VITAMIN D [Concomitant]
     Active Substance: CHOLECALCIFEROL
  7. FLONASE [Concomitant]
     Active Substance: FLUTICASONE PROPIONATE
  8. LORATADINE. [Concomitant]
     Active Substance: LORATADINE
  9. COMETRIQ [Suspect]
     Active Substance: CABOZANTINIB S-MALATE
     Dosage: 40 MG, QD
     Route: 048
     Dates: start: 20170401
  10. METFORMIN [Concomitant]
     Active Substance: METFORMIN HYDROCHLORIDE

REACTIONS (15)
  - Nail bed inflammation [Unknown]
  - Pain in extremity [Unknown]
  - Emotional disorder [Unknown]
  - Malnutrition [Unknown]
  - Temperature intolerance [Unknown]
  - Oral pain [Unknown]
  - Rash [Unknown]
  - Abdominal discomfort [Unknown]
  - Blister [Unknown]
  - Gastrointestinal sounds abnormal [Unknown]
  - Tongue discolouration [Unknown]
  - Dyspepsia [Unknown]
  - Flatulence [Unknown]
  - Fatigue [Unknown]
  - Dysgeusia [Unknown]
